FAERS Safety Report 9566047 (Version 2)
Quarter: 2013Q4

REPORT INFORMATION
  Report Type: Spontaneous
  Country: DK (occurrence: DK)
  Receive Date: 20130930
  Receipt Date: 20131203
  Transmission Date: 20140711
  Serious: Yes (Other)
  Sender: FDA-Public Use
  Company Number: PHHY2013DK108256

PATIENT
  Sex: Male

DRUGS (2)
  1. RITALIN UNO [Suspect]
     Dosage: 30 MG, DAILY
     Dates: start: 20130911
  2. MELATONIN [Concomitant]
     Dosage: UNK UKN, UNK

REACTIONS (1)
  - Blood urine present [Unknown]
